FAERS Safety Report 5869915-1 (Version None)
Quarter: 2008Q3

REPORT INFORMATION
  Report Type: 
  Country: None (occurrence: None)
  Receive Date: 20080904
  Receipt Date: 20080826
  Transmission Date: 20090109
  Serious: Yes (Other)
  Sender: FDA-Public Use
  Company Number: PHEH2008US07604

PATIENT
  Sex: Female

DRUGS (1)
  1. ZOMETA [Suspect]
     Dosage: UNK

REACTIONS (5)
  - HIP ARTHROPLASTY [None]
  - OSTEONECROSIS [None]
  - RENAL TRANSPLANT [None]
  - SALIVARY GLAND DISORDER [None]
  - SWELLING FACE [None]
